FAERS Safety Report 5003673-8 (Version None)
Quarter: 2006Q2

REPORT INFORMATION
  Report Type: 
  Country: None (occurrence: None)
  Receive Date: 20060516
  Receipt Date: 20060509
  Transmission Date: 20061013
  Serious: Yes (Hospitalization)
  Sender: FDA-Public Use
  Company Number: US-MERCK-0605USA01867

PATIENT
  Age: 52 Year
  Sex: Male

DRUGS (4)
  1. SINGULAIR [Suspect]
     Indication: ASTHMA
     Route: 048
  2. ADVAIR DISKUS 100/50 [Concomitant]
     Route: 065
  3. ALBUTEROL [Concomitant]
     Route: 065
  4. THEOPHYLLINE [Concomitant]
     Route: 065

REACTIONS (1)
  - ASTHMA [None]
